FAERS Safety Report 6685561-4 (Version None)
Quarter: 2010Q2

REPORT INFORMATION
  Report Type: 
  Country: None (occurrence: None)
  Receive Date: 20100419
  Receipt Date: 20100409
  Transmission Date: 20101027
  Serious: No
  Sender: FDA-Public Use
  Company Number: US-BIOGENIDEC-2010BI012224

PATIENT
  Sex: Male

DRUGS (2)
  1. TYSABRI [Suspect]
     Indication: MULTIPLE SCLEROSIS
     Route: 042
     Dates: start: 20080908, end: 20100115
  2. TYSABRI [Suspect]
     Route: 042
     Dates: start: 20100312

REACTIONS (3)
  - BLOOD PRESSURE INCREASED [None]
  - STRESS [None]
  - VISUAL ACUITY REDUCED [None]
